FAERS Safety Report 10479815 (Version 2)
Quarter: 2014Q4

REPORT INFORMATION
  Report Type: Spontaneous
  Country: US (occurrence: US)
  Receive Date: 20140928
  Receipt Date: 20141014
  Transmission Date: 20150528
  Serious: No
  Sender: FDA-Public Use
  Company Number: US-ASTRAZENECA-2014SE69886

PATIENT
  Age: 67 Year
  Sex: Female
  Weight: 74.8 kg

DRUGS (6)
  1. PULMICORT FLEXHALER [Suspect]
     Active Substance: BUDESONIDE
     Indication: COUGH
     Dosage: 2 PUFFS, TWO TIMES A DAY
     Route: 055
     Dates: start: 20140828, end: 20140913
  2. SINGULAIR [Concomitant]
     Active Substance: MONTELUKAST SODIUM
     Indication: SEASONAL ALLERGY
  3. PULMICORT FLEXHALER [Suspect]
     Active Substance: BUDESONIDE
     Indication: SEASONAL ALLERGY
     Dosage: 2 PUFFS, TWO TIMES A DAY
     Route: 055
     Dates: start: 20140828, end: 20140913
  4. FLUCONAZOLE. [Concomitant]
     Active Substance: FLUCONAZOLE
     Indication: ORAL CANDIDIASIS
     Route: 048
     Dates: start: 20140902
  5. PULMICORT FLEXHALER [Suspect]
     Active Substance: BUDESONIDE
     Indication: COUGH
     Dosage: 1 PUFF, EVERY 12 HOURS
     Route: 055
     Dates: start: 20140913
  6. PULMICORT FLEXHALER [Suspect]
     Active Substance: BUDESONIDE
     Indication: SEASONAL ALLERGY
     Dosage: 1 PUFF, EVERY 12 HOURS
     Route: 055
     Dates: start: 20140913

REACTIONS (8)
  - Hyperhidrosis [Not Recovered/Not Resolved]
  - Feeling abnormal [Not Recovered/Not Resolved]
  - Depressed mood [Not Recovered/Not Resolved]
  - Oral candidiasis [Unknown]
  - Dysphonia [Unknown]
  - Glossodynia [Unknown]
  - Drug ineffective [Unknown]
  - Product use issue [Unknown]

NARRATIVE: CASE EVENT DATE: 2014
